FAERS Safety Report 6688657-6 (Version None)
Quarter: 2010Q2

REPORT INFORMATION
  Report Type: 
  Country: None (occurrence: None)
  Receive Date: 20100420
  Receipt Date: 20100419
  Transmission Date: 20101027
  Serious: Yes (Death, Hospitalization)
  Sender: FDA-Public Use
  Company Number: A0778518A

PATIENT
  Age: 82 Year
  Sex: Female

DRUGS (1)
  1. ROSIGLITAZONE MALEATE [Suspect]
     Route: 048

REACTIONS (4)
  - CARDIOMEGALY [None]
  - DEATH [None]
  - MYOCARDIAL INFARCTION [None]
  - SWELLING [None]
